FAERS Safety Report 6320673-6 (Version None)
Quarter: 2009Q3

REPORT INFORMATION
  Report Type: 
  Country: None (occurrence: None)
  Receive Date: 20090822
  Receipt Date: 20081126
  Transmission Date: 20100115
  Serious: No
  Sender: FDA-Public Use
  Company Number: US-ABBOTT-08P-163-0489836-00

PATIENT

DRUGS (3)
  1. NIASPAN [Suspect]
     Indication: DRUG USE FOR UNKNOWN INDICATION
     Dates: start: 20081116
  2. MELOXICAM [Concomitant]
     Indication: DRUG USE FOR UNKNOWN INDICATION
  3. ESTRIADOL [Concomitant]
     Indication: DRUG USE FOR UNKNOWN INDICATION

REACTIONS (3)
  - FLUSHING [None]
  - PARAESTHESIA [None]
  - PRURITUS [None]
